FAERS Safety Report 26132225 (Version 1)
Quarter: 2025Q4

REPORT INFORMATION
  Report Type: Spontaneous
  Country: US (occurrence: None)
  Receive Date: 20251208
  Receipt Date: 20251208
  Transmission Date: 20260117
  Serious: No
  Sender: FDA-CTU
  Company Number: None

PATIENT
  Sex: Female

DRUGS (2)
  1. TREMFYA [Suspect]
     Active Substance: GUSELKUMAB
     Indication: Crohn^s disease
     Dosage: 200 MG/ML EVERY 4 WEEKS SUBCUTANEOUS
     Route: 058
  2. TREMFYA PEN (2/BOX) [Concomitant]

REACTIONS (2)
  - Condition aggravated [None]
  - Crohn^s disease [None]
